FAERS Safety Report 13720842 (Version 1)
Quarter: 2017Q3

REPORT INFORMATION
  Report Type: Spontaneous
  Country: US (occurrence: US)
  Receive Date: 20170706
  Receipt Date: 20170706
  Transmission Date: 20171127
  Serious: Yes (Hospitalization, Other)
  Sender: FDA-Public Use
  Company Number: US-AUROBINDO-AUR-APL-2017-36501

PATIENT
  Age: 15 Year
  Sex: Female

DRUGS (3)
  1. ACETYLSALICYLIC ACID [Suspect]
     Active Substance: ASPIRIN
     Indication: PRODUCT USED FOR UNKNOWN INDICATION
     Dosage: APPROXIMATELY 25 TABLETS OF ASPIRIN (135 MG/KG)
     Route: 048
  2. IBUPROFEN. [Suspect]
     Active Substance: IBUPROFEN
     Indication: PRODUCT USED FOR UNKNOWN INDICATION
     Dosage: 2000 MG, UNK
     Route: 065
  3. BISMUTH SUBSALICYLATE. [Suspect]
     Active Substance: BISMUTH SUBSALICYLATE
     Indication: PRODUCT USED FOR UNKNOWN INDICATION
     Dosage: UNK, FEW STOMACH PILLS
     Route: 048

REACTIONS (7)
  - Nausea [Recovering/Resolving]
  - Overdose [Recovering/Resolving]
  - Bezoar [Recovering/Resolving]
  - Abdominal pain [Recovering/Resolving]
  - Tinnitus [Recovering/Resolving]
  - Tachypnoea [Recovering/Resolving]
  - Toxicity to various agents [Recovering/Resolving]
